FAERS Safety Report 10257009 (Version 1)
Quarter: 2014Q2

REPORT INFORMATION
  Report Type: Spontaneous
  Country: US (occurrence: US)
  Receive Date: 20140625
  Receipt Date: 20140625
  Transmission Date: 20141212
  Serious: No
  Sender: FDA-Public Use
  Company Number: US-BIOGENIDEC-2014BI059831

PATIENT
  Age: 48 Year
  Sex: Female

DRUGS (3)
  1. TYSABRI [Suspect]
     Indication: MULTIPLE SCLEROSIS
     Route: 042
     Dates: start: 20110323, end: 20110520
  2. TYSABRI [Suspect]
     Indication: MULTIPLE SCLEROSIS
     Route: 042
  3. AVONEX [Concomitant]
     Indication: MULTIPLE SCLEROSIS
     Route: 030

REACTIONS (6)
  - Cardiac disorder [Recovered/Resolved]
  - Gastric disorder [Unknown]
  - Central nervous system lesion [Not Recovered/Not Resolved]
  - Vein disorder [Not Recovered/Not Resolved]
  - Liver injury [Unknown]
  - Multiple sclerosis relapse [Not Recovered/Not Resolved]
